FAERS Safety Report 20489791 (Version 3)
Quarter: 2022Q3

REPORT INFORMATION
  Report Type: Spontaneous
  Country: JP (occurrence: JP)
  Receive Date: 20220218
  Receipt Date: 20220715
  Transmission Date: 20221026
  Serious: No
  Sender: FDA-Public Use
  Company Number: JP-GLAXOSMITHKLINE-JP2022JPN023585

PATIENT

DRUGS (5)
  1. SOTROVIMAB [Suspect]
     Active Substance: SOTROVIMAB
     Indication: COVID-19
     Dosage: 500 MG/100 ML/30 MIN, QD
     Route: 041
     Dates: start: 20220131, end: 20220131
  2. TELMISARTAN [Concomitant]
     Active Substance: TELMISARTAN
     Indication: Cardiac failure
     Dosage: 40 MG, QD
  3. SPIRONOLACTONE [Concomitant]
     Active Substance: SPIRONOLACTONE
     Indication: Cardiac failure
     Dosage: 25 MG, QD
  4. CALONAL [Concomitant]
     Active Substance: ACETAMINOPHEN
     Indication: Pyrexia
     Dosage: 200 MG, PRN
  5. BUFFERIN A81 (ACETYLSALICYLIC ACID + ALUMINIUM GLYCINATE + MAGNESIUM C [Concomitant]
     Dosage: 1 DF, QD

REACTIONS (2)
  - Rash [Recovered/Resolved]
  - Pruritus [Recovered/Resolved]

NARRATIVE: CASE EVENT DATE: 20220131
